FAERS Safety Report 8448957-6 (Version None)
Quarter: 2012Q2

REPORT INFORMATION
  Report Type: 
  Country: None (occurrence: None)
  Receive Date: 20120619
  Receipt Date: 20120612
  Transmission Date: 20120825
  Serious: Yes (Other)
  Sender: FDA-Public Use
  Company Number: DE-GLAXOSMITHKLINE-D0075966A

PATIENT
  Sex: Female
  Weight: 80 kg

DRUGS (5)
  1. METFORMIN HCL [Suspect]
     Dosage: 500MG SEE DOSAGE TEXT
     Route: 048
     Dates: start: 20120612, end: 20120612
  2. VENLAFAXINE HCL [Suspect]
     Dosage: 75MG SEE DOSAGE TEXT
     Route: 048
     Dates: start: 20120612, end: 20120612
  3. BEER [Suspect]
     Dosage: 1BT SEE DOSAGE TEXT
     Route: 048
     Dates: start: 20120612, end: 20120612
  4. LAMICTAL [Suspect]
     Dosage: 50MG SEE DOSAGE TEXT
     Route: 048
     Dates: start: 20120612, end: 20120612
  5. LAMICTAL [Suspect]
     Dosage: 100MG SEE DOSAGE TEXT
     Route: 048
     Dates: start: 20120612, end: 20120612

REACTIONS (4)
  - SOMNOLENCE [None]
  - INTENTIONAL OVERDOSE [None]
  - SUICIDE ATTEMPT [None]
  - MULTIPLE DRUG OVERDOSE INTENTIONAL [None]
